FAERS Safety Report 21713624 (Version 1)
Quarter: 2022Q4

REPORT INFORMATION
  Report Type: Spontaneous
  Country: None (occurrence: DK)
  Receive Date: 20221212
  Receipt Date: 20221212
  Transmission Date: 20230113
  Serious: Yes (Other)
  Sender: FDA-Public Use
  Company Number: DK-Hill Dermaceuticals, Inc.-2135766

PATIENT
  Age: 64 Year
  Sex: Female
  Weight: 102 kg

DRUGS (9)
  1. TOLAK [Suspect]
     Active Substance: FLUOROURACIL
     Indication: Actinic keratosis
     Route: 003
     Dates: start: 20220915, end: 20221013
  2. SIMVASTATIN [Concomitant]
     Active Substance: SIMVASTATIN
     Dates: start: 20180626
  3. TRESIBA [Concomitant]
     Active Substance: INSULIN DEGLUDEC
     Dates: start: 20171124
  4. Hjertemagnyl [Concomitant]
     Dates: start: 20180920
  5. DAPAGLIFLOZIN [Concomitant]
     Active Substance: DAPAGLIFLOZIN
     Dates: start: 20160916
  6. SPIRONOLACTONE [Concomitant]
     Active Substance: SPIRONOLACTONE
     Dates: start: 20130220
  7. LEVOTHYROXINE [Concomitant]
     Active Substance: LEVOTHYROXINE
     Dates: start: 20121217
  8. OZEMPIC [Concomitant]
     Active Substance: SEMAGLUTIDE
     Dates: start: 20190502
  9. METFORMIN HYDROCHLORIDE [Concomitant]
     Active Substance: METFORMIN HYDROCHLORIDE
     Dates: start: 20160108

REACTIONS (1)
  - Dermatitis exfoliative [Not Recovered/Not Resolved]

NARRATIVE: CASE EVENT DATE: 20221013
